FAERS Safety Report 7727104-X (Version None)
Quarter: 2011Q3

REPORT INFORMATION
  Report Type: 
  Country: None (occurrence: None)
  Receive Date: 20110902
  Receipt Date: 20110825
  Transmission Date: 20111222
  Serious: Yes (Hospitalization)
  Sender: FDA-Public Use
  Company Number: GB-JNJFOC-20110900707

PATIENT
  Age: 90 Year
  Sex: Male

DRUGS (9)
  1. ATORVASTATIN [Concomitant]
  2. DIGOXIN [Concomitant]
  3. IBUPROFEN [Concomitant]
  4. PENTOXIFYLLINE [Concomitant]
  5. TRIMETHOPRIM [Concomitant]
  6. XARELTO [Suspect]
     Indication: THROMBOSIS PROPHYLAXIS
     Route: 048
     Dates: start: 20110804, end: 20110808
  7. XARELTO [Suspect]
     Indication: KNEE ARTHROPLASTY
     Route: 048
     Dates: start: 20110804, end: 20110808
  8. CODEINE [Concomitant]
  9. ACETAMINOPHEN [Concomitant]

REACTIONS (1)
  - RENAL FAILURE ACUTE [None]
